FAERS Safety Report 6171443-3 (Version None)
Quarter: 2009Q2

REPORT INFORMATION
  Report Type: 
  Country: None (occurrence: None)
  Receive Date: 20090429
  Receipt Date: 20090312
  Transmission Date: 20091009
  Serious: No
  Sender: FDA-Public Use
  Company Number: US-BAYER-200915381NA

PATIENT
  Age: 20 Year
  Sex: Female
  Weight: 84 kg

DRUGS (1)
  1. YAZ [Suspect]
     Indication: VAGINAL HAEMORRHAGE
     Dates: start: 20081001

REACTIONS (2)
  - NO ADVERSE EVENT [None]
  - WEIGHT INCREASED [None]
